FAERS Safety Report 10174165 (Version 2)
Quarter: 2014Q2

REPORT INFORMATION
  Report Type: Spontaneous
  Country: US (occurrence: None)
  Receive Date: 20140416
  Receipt Date: 20140604
  Transmission Date: 20141212
  Serious: Yes (Hospitalization, Other)
  Sender: FDA-Public Use
  Company Number: 163-POMAL-14010014

PATIENT
  Age: 65 Year
  Sex: Male
  Weight: 72.58 kg

DRUGS (6)
  1. POMALYST (POMALIDOMIDE) [Suspect]
     Indication: PLASMA CELL MYELOMA
     Dosage: 1 IN 1 D
     Route: 048
     Dates: start: 201308
  2. JANUMET [Concomitant]
  3. PRAVASTATIN SODIUM [Concomitant]
  4. ASPIRIN (ACETYLSALICYLIC ACID) [Concomitant]
  5. VITAMIN D (ERGOCALCIFEROL) [Concomitant]
  6. VITAMIN B COMPLEX (B-KOMPLEX ^LECIVA^) [Concomitant]

REACTIONS (2)
  - Pain [None]
  - Weight decreased [None]
